FAERS Safety Report 12756565 (Version 7)
Quarter: 2018Q3

REPORT INFORMATION
  Report Type: Spontaneous
  Country: IT (occurrence: IT)
  Receive Date: 20160917
  Receipt Date: 20180911
  Transmission Date: 20181010
  Serious: Yes (Hospitalization)
  Sender: FDA-Public Use
  Company Number: IT-SUN PHARMACEUTICAL INDUSTRIES LTD-2016RR-124124

PATIENT
  Age: 55 Year
  Sex: Female

DRUGS (1)
  1. LETROZOLE. [Suspect]
     Active Substance: LETROZOLE
     Indication: CANCER HORMONAL THERAPY
     Dosage: 2.5 MG, DAILY
     Route: 065
     Dates: start: 201207

REACTIONS (1)
  - Antisynthetase syndrome [Recovering/Resolving]

NARRATIVE: CASE EVENT DATE: 201210
